FAERS Safety Report 14760054 (Version 2)
Quarter: 2018Q2

REPORT INFORMATION
  Report Type: Spontaneous
  Country: US (occurrence: US)
  Receive Date: 20180413
  Receipt Date: 20180618
  Transmission Date: 20180711
  Serious: No
  Sender: FDA-Public Use
  Company Number: US-ACTELION-A-US2018-170727

PATIENT
  Age: 80 Year
  Sex: Female

DRUGS (3)
  1. COUMADIN [Concomitant]
     Active Substance: WARFARIN SODIUM
  2. OPSUMIT [Suspect]
     Active Substance: MACITENTAN
     Indication: PULMONARY ARTERIAL HYPERTENSION
     Dosage: 10 MG, QD
     Route: 048
     Dates: start: 20140124
  3. TYLENOL [Concomitant]
     Active Substance: ACETAMINOPHEN
     Dosage: TWO

REACTIONS (7)
  - Cardiac failure [Unknown]
  - Nasal congestion [Unknown]
  - Cough [Unknown]
  - Hypersensitivity [Unknown]
  - Viral infection [Unknown]
  - Nasopharyngitis [Unknown]
  - Oropharyngeal pain [Unknown]

NARRATIVE: CASE EVENT DATE: 20180406
